FAERS Safety Report 16709423 (Version 1)
Quarter: 2019Q3

REPORT INFORMATION
  Report Type: Spontaneous
  Country: CA (occurrence: CA)
  Receive Date: 20190816
  Receipt Date: 20190816
  Transmission Date: 20191004
  Serious: Yes (Other)
  Sender: FDA-Public Use
  Company Number: CA-AUROBINDO-AUR-APL-2019-052780

PATIENT

DRUGS (1)
  1. MIRTAZAPINE TABLET [Suspect]
     Active Substance: MIRTAZAPINE
     Indication: WITHDRAWAL SYNDROME
     Dosage: 15 MILLIGRAM, DAILY
     Route: 048

REACTIONS (5)
  - Suicidal ideation [Unknown]
  - Anxiety [Unknown]
  - Tremor [Unknown]
  - Vision blurred [Unknown]
  - Dizziness [Unknown]
